FAERS Safety Report 14097570 (Version 1)
Quarter: 2017Q4

REPORT INFORMATION
  Report Type: Report from Study
  Country: DE (occurrence: DE)
  Receive Date: 20171017
  Receipt Date: 20171017
  Transmission Date: 20180321
  Serious: Yes (Death)
  Sender: FDA-Public Use
  Company Number: DE-ROCHE-1742437

PATIENT
  Age: 69 Year
  Sex: Female
  Weight: 56 kg

DRUGS (13)
  1. XELODA [Suspect]
     Active Substance: CAPECITABINE
     Indication: BREAST CANCER
     Route: 048
     Dates: start: 20160311, end: 20160324
  2. XELODA [Suspect]
     Active Substance: CAPECITABINE
     Route: 048
     Dates: start: 20160610, end: 20160623
  3. XELODA [Suspect]
     Active Substance: CAPECITABINE
     Route: 048
     Dates: start: 20160701, end: 20160714
  4. PREGABADOR [Concomitant]
     Indication: NEURALGIA
     Route: 048
     Dates: start: 20160310
  5. XELODA [Suspect]
     Active Substance: CAPECITABINE
     Route: 048
     Dates: start: 20160429, end: 20160512
  6. XELODA [Suspect]
     Active Substance: CAPECITABINE
     Route: 048
     Dates: start: 20160714, end: 20160714
  7. RANITIDIN [Concomitant]
     Active Substance: RANITIDINE HYDROCHLORIDE
     Indication: PROPHYLAXIS
     Dosage: BEFORE ADMINISTRATION OF AVASTIN
     Route: 042
     Dates: start: 20160310
  8. FENISTIL (GERMANY) [Concomitant]
     Indication: HYPERSENSITIVITY
     Dosage: BEFORE ADMINISTRATION OF AVASTIN
     Route: 042
     Dates: start: 20160310
  9. BEVACIZUMAB. [Suspect]
     Active Substance: BEVACIZUMAB
     Indication: BREAST CANCER
     Route: 042
     Dates: start: 20160310, end: 20160310
  10. XELODA [Suspect]
     Active Substance: CAPECITABINE
     Route: 048
     Dates: start: 20160401, end: 20160414
  11. XELODA [Suspect]
     Active Substance: CAPECITABINE
     Route: 048
     Dates: start: 20160520, end: 20160602
  12. BEVACIZUMAB. [Suspect]
     Active Substance: BEVACIZUMAB
     Route: 042
     Dates: start: 20160714, end: 20160714
  13. SOLU DECORTIN [Concomitant]
     Active Substance: PREDNISOLONE SODIUM SUCCINATE
     Indication: HYPERSENSITIVITY
     Dosage: BEFORE ADMINISTRATION OF AVASTIN
     Route: 042
     Dates: start: 20160310

REACTIONS (2)
  - General physical health deterioration [Fatal]
  - Apathy [Fatal]

NARRATIVE: CASE EVENT DATE: 20160720
